FAERS Safety Report 9649585 (Version 2)
Quarter: 2013Q4

REPORT INFORMATION
  Report Type: Report from Study
  Country: NL (occurrence: NL)
  Receive Date: 20131028
  Receipt Date: 20131028
  Transmission Date: 20140711
  Serious: Yes (Death)
  Sender: FDA-Public Use
  Company Number: NL-ABBVIE-12P-114-0938901-00

PATIENT
  Sex: Male

DRUGS (1)
  1. LEUPRORELINE (LUCRIN) 30 MG [Suspect]
     Indication: PROSTATE CANCER
     Route: 058
     Dates: start: 2010

REACTIONS (3)
  - Death [Fatal]
  - Musculoskeletal stiffness [Not Recovered/Not Resolved]
  - Hot flush [Not Recovered/Not Resolved]
